FAERS Safety Report 8683897 (Version 3)
Quarter: 2014Q3

REPORT INFORMATION
  Report Type: Spontaneous
  Country: FR (occurrence: FR)
  Receive Date: 20120726
  Receipt Date: 20140924
  Transmission Date: 20150326
  Serious: Yes (Hospitalization)
  Sender: FDA-Public Use
  Company Number: FR-PFIZER INC-2012175601

PATIENT
  Age: 3 Year
  Sex: Male
  Weight: 15.8 kg

DRUGS (2)
  1. CHILDRENS ADVIL [Suspect]
     Active Substance: IBUPROFEN
     Dosage: UNK
     Route: 048
     Dates: start: 20120614, end: 20120614
  2. INFANRIXQUINTA [Suspect]
     Active Substance: DIPHTHERIA AND TETANUS TOXOIDS AND ACELLULAR PERTUSSIS ADSORBED, INACTIVATED POLIOVIRUS AND HAEMOPHILUS B CONJUGATE (TETANUS TOXOID CONJUGATE) VACCINE
     Indication: IMMUNISATION
     Dosage: UNK
     Dates: start: 20120613, end: 20120613

REACTIONS (3)
  - Pyrexia [None]
  - Injection site reaction [Recovered/Resolved]
  - Injection site cellulitis [None]

NARRATIVE: CASE EVENT DATE: 20120614
